FAERS Safety Report 25270672 (Version 5)
Quarter: 2025Q3

REPORT INFORMATION
  Report Type: Report from Study
  Country: US (occurrence: US)
  Receive Date: 20250505
  Receipt Date: 20250916
  Transmission Date: 20251020
  Serious: Yes (Other)
  Sender: SUNOVION
  Company Number: US-SMPA-2025SPA005020AA

PATIENT
  Age: 65 Year
  Sex: Male

DRUGS (4)
  1. ORGOVYX [Suspect]
     Active Substance: RELUGOLIX
     Indication: Prostate cancer
     Route: 048
     Dates: start: 20250301, end: 20250301
  2. ORGOVYX [Suspect]
     Active Substance: RELUGOLIX
     Dosage: 120 MG, QD
     Route: 048
     Dates: start: 20250302
  3. MAGNESIUM [Concomitant]
     Active Substance: MAGNESIUM
  4. POTASSIUM [Concomitant]
     Active Substance: POTASSIUM

REACTIONS (12)
  - Metastases to lymph nodes [Unknown]
  - Sleep inertia [Unknown]
  - Feeling abnormal [Not Recovered/Not Resolved]
  - Muscle spasms [Unknown]
  - Decreased activity [Unknown]
  - Nocturia [Unknown]
  - Sexual dysfunction [Unknown]
  - Hot flush [Not Recovered/Not Resolved]
  - Fatigue [Unknown]
  - Insomnia [Not Recovered/Not Resolved]
  - Diarrhoea [Recovering/Resolving]
  - Weight increased [Unknown]
